FAERS Safety Report 16821754 (Version 2)
Quarter: 2019Q4

REPORT INFORMATION
  Report Type: Spontaneous
  Country: US (occurrence: US)
  Receive Date: 20190918
  Receipt Date: 20191112
  Transmission Date: 20200122
  Serious: No
  Sender: FDA-Public Use
  Company Number: US-APOTEX-2019AP021292

PATIENT
  Sex: Male

DRUGS (1)
  1. OMEGA-3-ACID ETHYL ESTERS CAPSULES USP [Suspect]
     Active Substance: OMEGA-3-ACID ETHYL ESTERS
     Indication: PRODUCT USED FOR UNKNOWN INDICATION
     Dosage: UNK
     Route: 065

REACTIONS (3)
  - Product colour issue [Unknown]
  - Product odour abnormal [Unknown]
  - Product container issue [Unknown]
